FAERS Safety Report 25591559 (Version 1)
Quarter: 2025Q3

REPORT INFORMATION
  Report Type: Spontaneous
  Country: US (occurrence: US)
  Receive Date: 20250722
  Receipt Date: 20250722
  Transmission Date: 20251020
  Serious: Yes (Other)
  Sender: AMNEAL
  Company Number: US-AMNEAL PHARMACEUTICALS-2025-AMRX-02679

PATIENT
  Age: 72 Year
  Sex: Female

DRUGS (1)
  1. PYRIDOSTIGMINE BROMIDE [Suspect]
     Active Substance: PYRIDOSTIGMINE BROMIDE
     Indication: Myasthenia gravis
     Dosage: 30 MILLIGRAM, 5X/DAY
     Route: 065

REACTIONS (2)
  - Atrioventricular block complete [Recovering/Resolving]
  - Syncope [Unknown]
